FAERS Safety Report 16239868 (Version 1)
Quarter: 2019Q2

REPORT INFORMATION
  Report Type: Report from Study
  Country: US (occurrence: US)
  Receive Date: 20190425
  Receipt Date: 20190425
  Transmission Date: 20190711
  Serious: Yes (Death, Hospitalization)
  Sender: FDA-Public Use
  Company Number: US-EXELIXIS-CABO-19019646

PATIENT
  Age: 83 Year
  Sex: Male

DRUGS (35)
  1. CABOMETYX [Suspect]
     Active Substance: CABOZANTINIB S-MALATE
     Indication: RENAL CANCER
     Dosage: 40 MG, QD
     Route: 048
     Dates: start: 20180929
  2. VITAMIN D NOS [Concomitant]
     Active Substance: VITAMIN D NOS
  3. OMEPRAZOLE. [Concomitant]
     Active Substance: OMEPRAZOLE
  4. LEVEMIR [Concomitant]
     Active Substance: INSULIN DETEMIR
  5. POTASSIUM CHLORIDE. [Concomitant]
     Active Substance: POTASSIUM CHLORIDE
  6. FUROSEMIDE. [Concomitant]
     Active Substance: FUROSEMIDE
  7. FINASTERIDE. [Concomitant]
     Active Substance: FINASTERIDE
  8. MYRBETRIQ [Concomitant]
     Active Substance: MIRABEGRON
  9. HUMALOG [Concomitant]
     Active Substance: INSULIN LISPRO
  10. NITROFURANTIN [Concomitant]
     Active Substance: NITROFURANTOIN
  11. LIDOCAINE. [Concomitant]
     Active Substance: LIDOCAINE
  12. DRONABINOL. [Concomitant]
     Active Substance: DRONABINOL
  13. METOPROLOL TARTRATE. [Concomitant]
     Active Substance: METOPROLOL TARTRATE
  14. GLIMEPIRIDE. [Concomitant]
     Active Substance: GLIMEPIRIDE
  15. CHOLESTYRAMIN [Concomitant]
     Active Substance: CHOLESTYRAMINE
  16. CIPROFLOXACIN. [Concomitant]
     Active Substance: CIPROFLOXACIN
  17. AMIODARONE [Concomitant]
     Active Substance: AMIODARONE
  18. LEVOTHYROXINE. [Concomitant]
     Active Substance: LEVOTHYROXINE
  19. PREDNISONE. [Concomitant]
     Active Substance: PREDNISONE
  20. ELIQUIS [Concomitant]
     Active Substance: APIXABAN
  21. AMOXICILLIN + CLAV. POTASSIUM [Concomitant]
     Active Substance: AMOXICILLIN\CLAVULANATE POTASSIUM
  22. BISACODYL. [Concomitant]
     Active Substance: BISACODYL
  23. MAGNESIUM OXIDE. [Concomitant]
     Active Substance: MAGNESIUM OXIDE
  24. PAROXETINE. [Concomitant]
     Active Substance: PAROXETINE
  25. DILTIAZEM. [Concomitant]
     Active Substance: DILTIAZEM
  26. ONDANSETRON [Concomitant]
     Active Substance: ONDANSETRON
  27. FOLIC ACID. [Concomitant]
     Active Substance: FOLIC ACID
  28. HYDROCORTISONE. [Concomitant]
     Active Substance: HYDROCORTISONE
  29. AMOXICILLIN. [Concomitant]
     Active Substance: AMOXICILLIN
  30. CLOBETASOL [Concomitant]
     Active Substance: CLOBETASOL
  31. NYSTOP [Concomitant]
     Active Substance: NYSTATIN
  32. DIPHENOXYLATE/ATROPINE [Concomitant]
     Active Substance: ATROPINE\DIPHENOXYLATE
  33. HYDROXYCHLOROQUINE [Concomitant]
     Active Substance: HYDROXYCHLOROQUINE
  34. DIGOXIN. [Concomitant]
     Active Substance: DIGOXIN
  35. CHLORHEXIDINE GLUCONATE. [Concomitant]
     Active Substance: CHLORHEXIDINE GLUCONATE

REACTIONS (2)
  - Death [Fatal]
  - Dehydration [Not Recovered/Not Resolved]

NARRATIVE: CASE EVENT DATE: 20190319
